FAERS Safety Report 9753826 (Version 1)
Quarter: 2013Q4

REPORT INFORMATION
  Report Type: Spontaneous
  Country: US (occurrence: US)
  Receive Date: 20131213
  Receipt Date: 20131213
  Transmission Date: 20140711
  Serious: No
  Sender: FDA-Public Use
  Company Number: US-GILEAD-2010-0027576

PATIENT
  Sex: Female
  Weight: 98.88 kg

DRUGS (10)
  1. LETAIRIS [Suspect]
     Indication: PULMONARY ARTERIAL HYPERTENSION
     Route: 048
     Dates: start: 20071107
  2. TENORMIN [Concomitant]
  3. ZETIA [Concomitant]
  4. LASIX [Concomitant]
  5. COUMADIN [Concomitant]
  6. KLONOPIN [Concomitant]
  7. MAXALT [Concomitant]
  8. CYPROHEPTADINE [Concomitant]
  9. OXYCONTIN [Concomitant]
  10. PROZAC [Concomitant]

REACTIONS (1)
  - Fatigue [Unknown]
